FAERS Safety Report 11078452 (Version 2)
Quarter: 2015Q2

REPORT INFORMATION
  Report Type: Spontaneous
  Country: JP (occurrence: JP)
  Receive Date: 20150430
  Receipt Date: 20150521
  Transmission Date: 20150821
  Serious: Yes (Death, Hospitalization)
  Sender: FDA-Public Use
  Company Number: JP-MYLANLABS-2015M1014422

PATIENT

DRUGS (9)
  1. DOCETAXEL. [Suspect]
     Active Substance: DOCETAXEL
     Indication: PROSTATE CANCER STAGE II
     Dosage: 80 MG/BODY, THEN REDUCED
     Route: 065
  2. DOCETAXEL. [Suspect]
     Active Substance: DOCETAXEL
     Dosage: 45 MG/BODY FROM THE FIFTH COURSE
     Route: 065
  3. ESTRAMUSTINE PHOSPHATE SODIUM [Suspect]
     Active Substance: ESTRAMUSTINE PHOSPHATE SODIUM
     Indication: PROSTATE CANCER STAGE II
     Route: 065
     Dates: start: 201204, end: 201205
  4. LEUPRORELIN [Concomitant]
     Active Substance: LEUPROLIDE ACETATE
     Indication: PROSTATE CANCER STAGE II
     Route: 065
     Dates: start: 201109
  5. FLUTAMIDE. [Concomitant]
     Active Substance: FLUTAMIDE
     Indication: PROSTATE CANCER STAGE II
     Route: 065
     Dates: start: 201201, end: 201204
  6. ZOLEDRONIC ACID [Suspect]
     Active Substance: ZOLEDRONIC ACID
     Indication: METASTATIC PAIN
     Route: 065
     Dates: start: 201302
  7. DOCETAXEL. [Suspect]
     Active Substance: DOCETAXEL
     Dosage: 60 MG/BODY FROM THE THIRD COURSE, THEN REDUCED
     Route: 065
  8. BICALUTAMIDE. [Concomitant]
     Active Substance: BICALUTAMIDE
     Indication: PROSTATE CANCER STAGE II
     Route: 065
     Dates: start: 201109
  9. DEXAMETHASONE. [Concomitant]
     Active Substance: DEXAMETHASONE
     Indication: PROSTATE CANCER STAGE II
     Route: 065
     Dates: start: 201205

REACTIONS (5)
  - Pneumonia aspiration [Fatal]
  - Pneumatosis intestinalis [Recovering/Resolving]
  - Portal venous gas [Recovering/Resolving]
  - Nausea [Unknown]
  - Pyrexia [Recovered/Resolved]
